FAERS Safety Report 8820109 (Version 2)
Quarter: 2014Q1

REPORT INFORMATION
  Report Type: Report from Study
  Country: CA (occurrence: CA)
  Receive Date: 20121001
  Receipt Date: 20140321
  Transmission Date: 20141002
  Serious: Yes (Other)
  Sender: FDA-Public Use
  Company Number: CA-UCBSA-067692

PATIENT
  Age: 31 Year
  Sex: Male
  Weight: 77.11 kg

DRUGS (7)
  1. CIMZIA [Suspect]
     Indication: ANKYLOSING SPONDYLITIS
     Route: 058
     Dates: start: 20111227
  2. CIMZIA [Suspect]
     Indication: ANKYLOSING SPONDYLITIS
     Dosage: 3 DOSE INTAKES
     Route: 058
     Dates: start: 20111115, end: 20111213
  3. EURO-FOLIC [Concomitant]
     Indication: ANKYLOSING SPONDYLITIS
     Dosage: EXCEPT 1 DAY/WEEK
     Route: 048
     Dates: start: 201109
  4. METHOTREXATE [Concomitant]
     Indication: ANKYLOSING SPONDYLITIS
     Route: 048
     Dates: start: 201109
  5. PANTOLOC [Concomitant]
     Indication: PROPHYLAXIS AGAINST GASTROINTESTINAL ULCER
     Route: 048
  6. PREDFORT [Concomitant]
     Indication: UVEITIS
     Dosage: 1 DROP, 1 %
  7. HOMATROPINE [Concomitant]
     Indication: UVEITIS
     Dosage: UNIT: %; OCCULAR DROPS

REACTIONS (3)
  - Oral herpes [Not Recovered/Not Resolved]
  - Depression [Not Recovered/Not Resolved]
  - Arthralgia [Not Recovered/Not Resolved]
